FAERS Safety Report 7634457-X (Version None)
Quarter: 2011Q3

REPORT INFORMATION
  Report Type: 
  Country: None (occurrence: None)
  Receive Date: 20110725
  Receipt Date: 20110718
  Transmission Date: 20111222
  Serious: Yes (Other)
  Sender: FDA-Public Use
  Company Number: PHHY2011DE64737

PATIENT
  Age: 77 Year
  Sex: Male

DRUGS (2)
  1. ZOMETA [Suspect]
     Dosage: MONTHLY
     Route: 042
     Dates: start: 20091001, end: 20100601
  2. CORTISONE ACETATE [Concomitant]
     Dosage: UNK

REACTIONS (2)
  - PURULENCE [None]
  - OSTEONECROSIS OF JAW [None]
